FAERS Safety Report 7451156-8 (Version None)
Quarter: 2011Q2

REPORT INFORMATION
  Report Type: 
  Country: None (occurrence: None)
  Receive Date: 20110502
  Receipt Date: 20110419
  Transmission Date: 20111010
  Serious: Yes (Other)
  Sender: FDA-Public Use
  Company Number: PHEH2009US00649

PATIENT
  Sex: Female

DRUGS (4)
  1. AREDIA [Suspect]
     Indication: BREAST CANCER
     Dosage: 90 MG, QMO
     Dates: start: 20020201, end: 20030101
  2. WELLBUTRIN [Concomitant]
  3. CELEXA [Concomitant]
  4. ZOMETA [Suspect]
     Indication: BREAST CANCER
     Dosage: 4 MG, QMO
     Dates: start: 20030201, end: 20040201

REACTIONS (4)
  - IMPAIRED HEALING [None]
  - OSTEONECROSIS OF JAW [None]
  - BONE DISORDER [None]
  - EXOSTOSIS [None]
